FAERS Safety Report 14695289 (Version 2)
Quarter: 2018Q2

REPORT INFORMATION
  Report Type: Report from Study
  Country: US (occurrence: US)
  Receive Date: 20180329
  Receipt Date: 20180406
  Transmission Date: 20180711
  Serious: Yes (Hospitalization)
  Sender: FDA-Public Use
  Company Number: US-ACTELION-A-NJ2018-169789

PATIENT
  Age: 70 Year
  Sex: Female

DRUGS (4)
  1. VELETRI [Suspect]
     Active Substance: EPOPROSTENOL
     Indication: PULMONARY HYPERTENSION
     Dosage: 12 NG/KG, PER MIN
     Route: 042
  2. VELETRI [Suspect]
     Active Substance: EPOPROSTENOL
     Dosage: 10 NG/KG, PER MIN
     Route: 042
     Dates: start: 201803
  3. OPSUMIT [Concomitant]
     Active Substance: MACITENTAN
  4. VELETRI [Suspect]
     Active Substance: EPOPROSTENOL
     Dosage: UNK
     Route: 042
     Dates: start: 201606

REACTIONS (5)
  - Vomiting [Unknown]
  - Catheter management [Unknown]
  - Haematemesis [Recovering/Resolving]
  - Nausea [Unknown]
  - Mallory-Weiss syndrome [Recovering/Resolving]

NARRATIVE: CASE EVENT DATE: 201803
